FAERS Safety Report 19014242 (Version 2)
Quarter: 2021Q1

REPORT INFORMATION
  Report Type: Other
  Country: US (occurrence: US)
  Receive Date: 20210316
  Receipt Date: 20210320
  Transmission Date: 20210420
  Serious: Yes (Other)
  Sender: FDA-Public Use
  Company Number: US-ROCHE-2786455

PATIENT
  Sex: Female

DRUGS (10)
  1. GABAPENTIN. [Concomitant]
     Active Substance: GABAPENTIN
  2. XOLAIR [Suspect]
     Active Substance: OMALIZUMAB
     Indication: ASTHMA
     Dosage: INJECT 225MG SUBCUTANEOUSLY EVERY 14 DAY(S), ONGOING NOT REPORTED
     Route: 058
  3. XOLAIR [Suspect]
     Active Substance: OMALIZUMAB
  4. XOLAIR [Suspect]
     Active Substance: OMALIZUMAB
  5. XOLAIR [Suspect]
     Active Substance: OMALIZUMAB
  6. XOLAIR [Suspect]
     Active Substance: OMALIZUMAB
  7. XOLAIR [Suspect]
     Active Substance: OMALIZUMAB
  8. XOLAIR [Suspect]
     Active Substance: OMALIZUMAB
     Indication: INTERVERTEBRAL DISC DEGENERATION
  9. XOLAIR [Suspect]
     Active Substance: OMALIZUMAB
     Indication: LUMBAR RADICULOPATHY
     Dosage: INJECT 225MG SUBCUTANEOUSLY EVERY 14 DAY(S)
     Route: 058
  10. XOLAIR [Suspect]
     Active Substance: OMALIZUMAB

REACTIONS (3)
  - Intervertebral disc degeneration [Unknown]
  - Spinal disorder [Unknown]
  - Lumbar radiculopathy [Unknown]
